FAERS Safety Report 8169150-0 (Version None)
Quarter: 2012Q1

REPORT INFORMATION
  Report Type: 
  Country: None (occurrence: None)
  Receive Date: 20120227
  Receipt Date: 20120221
  Transmission Date: 20120608
  Serious: Yes (Other)
  Sender: FDA-Public Use
  Company Number: JP-VERTEX PHARMACEUTICALS INC.-AE-2012-002667

PATIENT
  Age: 66 Year
  Sex: Female

DRUGS (5)
  1. REBETOL [Concomitant]
     Indication: HEPATITIS C
     Route: 048
     Dates: end: 20120214
  2. REBETOL [Concomitant]
     Route: 048
     Dates: start: 20120214
  3. PEG-INTRON [Concomitant]
     Indication: HEPATITIS C
     Route: 058
     Dates: end: 20120214
  4. PEG-INTRON [Concomitant]
     Route: 058
     Dates: start: 20120214
  5. TELAVIC (TELAPREVIR) [Suspect]
     Indication: HEPATITIS C
     Route: 048
     Dates: start: 20120124

REACTIONS (1)
  - WHITE BLOOD CELL COUNT DECREASED [None]
